FAERS Safety Report 7867055-3 (Version None)
Quarter: 2011Q4

REPORT INFORMATION
  Report Type: 
  Country: None (occurrence: None)
  Receive Date: 20111028
  Receipt Date: 20111019
  Transmission Date: 20120403
  Serious: Yes (Hospitalization)
  Sender: FDA-Public Use
  Company Number: IT-JNJFOC-20111009392

PATIENT
  Age: 57 Year
  Sex: Male

DRUGS (3)
  1. SULFASALAZINE [Concomitant]
     Route: 048
  2. MEDROL [Concomitant]
     Route: 048
  3. REMICADE [Suspect]
     Indication: CROHN'S DISEASE
     Route: 042
     Dates: start: 20101130

REACTIONS (1)
  - CYTOMEGALOVIRUS ENTEROCOLITIS [None]
